FAERS Safety Report 14915786 (Version 3)
Quarter: 2018Q2

REPORT INFORMATION
  Report Type: Report from Study
  Country: CN (occurrence: CN)
  Receive Date: 20180518
  Receipt Date: 20180612
  Transmission Date: 20180711
  Serious: Yes (Hospitalization)
  Sender: FDA-Public Use
  Company Number: PHHY2017CN104290

PATIENT
  Age: 56 Year
  Sex: Female
  Weight: 53 kg

DRUGS (40)
  1. TYKERB [Suspect]
     Active Substance: LAPATINIB DITOSYLATE
     Indication: BREAST CANCER
     Dosage: 1250 MG, QD
     Route: 048
     Dates: start: 20170215
  2. RUDIN [Concomitant]
     Dosage: 5 MG, QD
     Route: 042
     Dates: start: 20170517, end: 20170524
  3. AMINOMETHYLBENZOIC ACID [Concomitant]
     Active Substance: AMINOMETHYLBENZOIC ACID
     Indication: HAEMORRHOIDAL HAEMORRHAGE
     Dosage: 0.6 G, QD
     Route: 042
     Dates: start: 20170311, end: 20170311
  4. DEXAMETHASONE SODIUM PHOSPHATE. [Concomitant]
     Active Substance: DEXAMETHASONE SODIUM PHOSPHATE
     Dosage: 5 MG, QD
     Route: 042
     Dates: start: 20170330, end: 20170421
  5. NAVELBINE [Concomitant]
     Active Substance: VINORELBINE TARTRATE
     Indication: CHEMOTHERAPY
     Dosage: 37 MG, QD
     Route: 042
     Dates: start: 20170307, end: 20170307
  6. NAVELBINE [Concomitant]
     Active Substance: VINORELBINE TARTRATE
     Dosage: 37 MG, QD
     Route: 042
     Dates: start: 20170330, end: 20170421
  7. NAVELBINE [Concomitant]
     Active Substance: VINORELBINE TARTRATE
     Dosage: 37 MG, QD
     Route: 042
     Dates: start: 20170607, end: 20170614
  8. NAVELBINE [Concomitant]
     Active Substance: VINORELBINE TARTRATE
     Dosage: 37 MG, QD
     Route: 042
     Dates: start: 20170628, end: 20170628
  9. RUDIN [Concomitant]
     Dosage: 5 MG, QD
     Route: 042
     Dates: start: 20170330, end: 20170421
  10. RUDIN [Concomitant]
     Dosage: 5 MG, QD
     Route: 042
     Dates: start: 20170607, end: 20170614
  11. URSODEOXYCHOLIC ACID [Concomitant]
     Active Substance: URSODIOL
     Indication: PROPHYLAXIS
     Dosage: 0.2 G, BID
     Route: 048
     Dates: start: 20170330, end: 20170421
  12. BESTATIN [Concomitant]
     Dosage: 30 MG, QD
     Route: 048
     Dates: start: 20170524, end: 20170608
  13. JILIFEN [Concomitant]
     Indication: WHITE BLOOD CELL COUNT DECREASED
     Dosage: 75 UG, QD
     Route: 065
     Dates: start: 20170614, end: 20170614
  14. PALONOSETRON HYDROCHLORIDE. [Concomitant]
     Active Substance: PALONOSETRON HYDROCHLORIDE
     Dosage: 0.25 MG, QD
     Route: 042
     Dates: start: 20170607, end: 20170614
  15. AMIFOSTINE. [Concomitant]
     Active Substance: AMIFOSTINE
     Indication: ADJUVANT THERAPY
     Dosage: 400 MG, QD
     Route: 042
     Dates: start: 20170307, end: 20170307
  16. INDOMETACIN [Concomitant]
     Active Substance: INDOMETHACIN
     Indication: BODY TEMPERATURE DECREASED
     Dosage: 0.5 OT, QD
     Route: 065
     Dates: start: 20170406, end: 20170406
  17. TYKERB [Suspect]
     Active Substance: LAPATINIB DITOSYLATE
     Dosage: 1000 MG, QD
     Route: 048
     Dates: start: 20170215
  18. NAVELBINE [Concomitant]
     Active Substance: VINORELBINE TARTRATE
     Dosage: 37 MG, QD
     Route: 042
     Dates: start: 20170517, end: 20170524
  19. URSODEOXYCHOLIC ACID [Concomitant]
     Active Substance: URSODIOL
     Dosage: 0.2 G, BID
     Route: 048
     Dates: start: 20170410, end: 20170420
  20. PALONOSETRON HYDROCHLORIDE. [Concomitant]
     Active Substance: PALONOSETRON HYDROCHLORIDE
     Dosage: 0.25 MG, BID
     Route: 042
     Dates: start: 20170517, end: 20170524
  21. AMIFOSTINE. [Concomitant]
     Active Substance: AMIFOSTINE
     Dosage: 400 MG, QD
     Route: 042
     Dates: start: 20170517, end: 20170524
  22. DEXAMETHASONE SODIUM PHOSPHATE. [Concomitant]
     Active Substance: DEXAMETHASONE SODIUM PHOSPHATE
     Indication: PROPHYLAXIS
     Dosage: 5 MG, QD
     Route: 042
     Dates: start: 20170307, end: 20170307
  23. HERCEPTIN [Concomitant]
     Active Substance: TRASTUZUMAB
     Indication: PRODUCT USED FOR UNKNOWN INDICATION
     Dosage: 330 MG, QD
     Route: 042
     Dates: start: 20170307, end: 20170307
  24. URSODEOXYCHOLIC ACID [Concomitant]
     Active Substance: URSODIOL
     Dosage: 0.1 G, QD
     Route: 048
     Dates: start: 20170627, end: 20170627
  25. BESTATIN [Concomitant]
     Indication: IMMUNE ENHANCEMENT THERAPY
     Dosage: 30 MG, QD
     Route: 048
     Dates: start: 20170410, end: 20170425
  26. BESTATIN [Concomitant]
     Dosage: 30 MG, QD
     Route: 048
     Dates: start: 20170614, end: 20170629
  27. PALONOSETRON HYDROCHLORIDE. [Concomitant]
     Active Substance: PALONOSETRON HYDROCHLORIDE
     Indication: PROPHYLAXIS
     Dosage: 0.25 MG, QD
     Route: 042
     Dates: start: 20170307, end: 20170307
  28. DEXAMETHASONE SODIUM PHOSPHATE. [Concomitant]
     Active Substance: DEXAMETHASONE SODIUM PHOSPHATE
     Dosage: 5 MG, QD
     Route: 042
     Dates: start: 20170628, end: 20170628
  29. HERCEPTIN [Concomitant]
     Active Substance: TRASTUZUMAB
     Dosage: 330 MG, QD
     Route: 042
     Dates: start: 20170330, end: 20170421
  30. HERCEPTIN [Concomitant]
     Active Substance: TRASTUZUMAB
     Dosage: 330 MG, QD
     Route: 042
     Dates: start: 20170607, end: 20170614
  31. RUDIN [Concomitant]
     Indication: PROPHYLAXIS
     Dosage: 5 MG, QD
     Route: 042
     Dates: start: 20170307, end: 20170307
  32. RUDIN [Concomitant]
     Dosage: 5 MG, QD
     Route: 042
     Dates: start: 20170628, end: 20170628
  33. ZADAXIN [Concomitant]
     Active Substance: THYMALFASIN
     Indication: IMMUNE ENHANCEMENT THERAPY
     Dosage: 1.6 MG, Q2W
     Route: 065
     Dates: start: 20170614, end: 20170704
  34. TIANQING YI TAI [Concomitant]
     Indication: METASTASES TO BONE
     Dosage: 4 MG, QD
     Route: 042
     Dates: start: 20170524, end: 20170524
  35. AMIFOSTINE. [Concomitant]
     Active Substance: AMIFOSTINE
     Dosage: 400 MG, QD
     Route: 042
     Dates: start: 20170330, end: 20170421
  36. ETAMSYLATE [Concomitant]
     Active Substance: ETHAMSYLATE
     Indication: HAEMORRHOIDAL HAEMORRHAGE
     Dosage: 3 G, QD
     Route: 042
     Dates: start: 20170311, end: 20170311
  37. HERCEPTIN [Concomitant]
     Active Substance: TRASTUZUMAB
     Dosage: 330 MG, QD
     Route: 042
     Dates: start: 20170628, end: 20170628
  38. POLYSACCHARIDE-IRON COMPLEX [Concomitant]
     Indication: ANAEMIA
     Dosage: 0.15 G, QD
     Route: 048
     Dates: start: 20170410, end: 20170430
  39. HERCEPTIN [Concomitant]
     Active Substance: TRASTUZUMAB
     Dosage: 330 MG, QD
     Route: 042
     Dates: start: 20170517, end: 20170524
  40. BANG TING [Concomitant]
     Indication: HAEMORRHOIDAL HAEMORRHAGE
     Dosage: 1 OT, QD
     Route: 042
     Dates: start: 20170311, end: 20170311

REACTIONS (6)
  - Diarrhoea [Recovered/Resolved]
  - Haematochezia [Recovered/Resolved]
  - Diarrhoea [Recovered/Resolved]
  - Pyrexia [Recovered/Resolved]
  - Platelet count decreased [Recovered/Resolved]
  - Anaemia [Recovered/Resolved]

NARRATIVE: CASE EVENT DATE: 20170217
